FAERS Safety Report 12506800 (Version 3)
Quarter: 2016Q3

REPORT INFORMATION
  Report Type: Spontaneous
  Country: AU (occurrence: AU)
  Receive Date: 20160628
  Receipt Date: 20160928
  Transmission Date: 20161109
  Serious: Yes (Other)
  Sender: FDA-Public Use
  Company Number: AU-BEH-2016070510

PATIENT
  Age: 34 Year
  Sex: Male
  Weight: 72.8 kg

DRUGS (3)
  1. RILUTEK [Concomitant]
     Active Substance: RILUZOLE
     Indication: MUSCULAR DYSTROPHY
     Dosage: 50 MG, OD
     Route: 048
     Dates: start: 20160518
  2. PRIVIGEN [Suspect]
     Active Substance: HUMAN IMMUNOGLOBULIN G
     Indication: MULTIFOCAL MOTOR NEUROPATHY
     Dosage: 30 G, QMT
     Route: 042
     Dates: start: 20160606, end: 20160610
  3. PRIVIGEN [Suspect]
     Active Substance: HUMAN IMMUNOGLOBULIN G
     Dosage: 30 G, QMT
     Route: 042

REACTIONS (6)
  - Fatigue [Recovered/Resolved]
  - Type III immune complex mediated reaction [Recovered/Resolved]
  - Malaise [Recovered/Resolved]
  - Inflammatory marker increased [Recovered/Resolved]
  - Vasculitic rash [Recovered/Resolved]
  - Pain [Recovered/Resolved]

NARRATIVE: CASE EVENT DATE: 20160613
